FAERS Safety Report 9443200 (Version 2)
Quarter: 2014Q2

REPORT INFORMATION
  Report Type: Spontaneous
  Country: IT (occurrence: IT)
  Receive Date: 20130806
  Receipt Date: 20140516
  Transmission Date: 20141212
  Serious: Yes (Hospitalization)
  Sender: FDA-Public Use
  Company Number: IT-ACTAVIS-2013-13776

PATIENT
  Age: 71 Year
  Sex: Female

DRUGS (3)
  1. CLOPIDOGREL (UNKNOWN) [Suspect]
     Indication: CEREBROVASCULAR ACCIDENT PROPHYLAXIS
     Dosage: 75 MG, DAILY
     Route: 048
     Dates: start: 20090101, end: 20130125
  2. RAMIPRIL [Concomitant]
     Indication: HYPERTENSION
  3. ATENOLOL [Concomitant]
     Indication: HYPERTENSION

REACTIONS (1)
  - Traumatic intracranial haemorrhage [Recovering/Resolving]
